FAERS Safety Report 13587631 (Version 1)
Quarter: 2017Q2

REPORT INFORMATION
  Report Type: Report from Study
  Country: US (occurrence: US)
  Receive Date: 20170526
  Receipt Date: 20170526
  Transmission Date: 20170830
  Serious: Yes (Death, Hospitalization)
  Sender: FDA-Public Use
  Company Number: US-B.I. PHARMACEUTICALS,INC./RIDGEFIELD-2017-BI-028128

PATIENT
  Age: 66 Year
  Sex: Male
  Weight: 69 kg

DRUGS (1)
  1. BIBF 1120 [Suspect]
     Active Substance: NINTEDANIB
     Indication: NEUROENDOCRINE CARCINOMA
     Route: 048
     Dates: start: 20170123, end: 20170513

REACTIONS (9)
  - Acute myocardial infarction [Unknown]
  - Acute myocardial infarction [Fatal]
  - Right-to-left cardiac shunt [Fatal]
  - Hypoxia [Fatal]
  - Acute myocardial infarction [Fatal]
  - Carcinoid heart disease [Fatal]
  - Atrial fibrillation [Fatal]
  - Cardiac failure [Fatal]
  - Atrial fibrillation [Unknown]

NARRATIVE: CASE EVENT DATE: 20170514
